FAERS Safety Report 14591406 (Version 2)
Quarter: 2018Q2

REPORT INFORMATION
  Report Type: Report from Study
  Country: NL (occurrence: NL)
  Receive Date: 20180302
  Receipt Date: 20180423
  Transmission Date: 20180711
  Serious: Yes (Death, Other)
  Sender: FDA-Public Use
  Company Number: NL-ROCHE-2083532

PATIENT
  Age: 73 Year
  Sex: Female

DRUGS (2)
  1. MYCOPHENOLATE MOFETIL. [Suspect]
     Active Substance: MYCOPHENOLATE MOFETIL
     Indication: PEMPHIGOID
     Route: 065
  2. RITUXIMAB. [Suspect]
     Active Substance: RITUXIMAB
     Indication: PEMPHIGOID
     Dosage: FIRST CYCLE: 2 X 500 MG
     Route: 042

REACTIONS (7)
  - Sepsis [Fatal]
  - Multiple organ dysfunction syndrome [Fatal]
  - Intentional product use issue [Fatal]
  - Neutropenia [Unknown]
  - Leukopenia [Unknown]
  - Off label use [Fatal]
  - Urinary tract infection [Unknown]
